FAERS Safety Report 24830962 (Version 1)
Quarter: 2025Q1

REPORT INFORMATION
  Report Type: Spontaneous
  Country: US (occurrence: US)
  Receive Date: 20250110
  Receipt Date: 20250110
  Transmission Date: 20250408
  Serious: No
  Sender: NOBELPHARMA AMERICA, LLC
  Company Number: US-Nobelpharma America, LLC-NPA-2024-02208

PATIENT
  Age: 40 Year
  Sex: Male

DRUGS (6)
  1. HYFTOR [Suspect]
     Active Substance: SIROLIMUS
     Indication: Angiofibroma
     Route: 003
     Dates: start: 20240827, end: 20241227
  2. CLONAZEPAM [Concomitant]
     Active Substance: CLONAZEPAM
  3. IBUPROFEN [Concomitant]
     Active Substance: IBUPROFEN
  4. KEPPRA [Concomitant]
     Active Substance: LEVETIRACETAM
  5. VITAMINS [Concomitant]
     Active Substance: VITAMINS
  6. LEVETIRACETAM [Concomitant]
     Active Substance: LEVETIRACETAM

REACTIONS (1)
  - Drug ineffective [Unknown]

NARRATIVE: CASE EVENT DATE: 20241227
